FAERS Safety Report 8296594-9 (Version None)
Quarter: 2012Q2

REPORT INFORMATION
  Report Type: 
  Country: None (occurrence: None)
  Receive Date: 20120418
  Receipt Date: 20120418
  Transmission Date: 20120825
  Serious: No
  Sender: FDA-Public Use
  Company Number: None

PATIENT
  Age: 63 Year

DRUGS (1)
  1. VELCADE [Suspect]
     Indication: MULTIPLE MYELOMA
     Dosage: NOT PROVIDED

REACTIONS (4)
  - NEUROPATHY PERIPHERAL [None]
  - INJECTION SITE RASH [None]
  - PARAESTHESIA [None]
  - FATIGUE [None]
